FAERS Safety Report 9519021 (Version 1)
Quarter: 2013Q1

REPORT INFORMATION
  Report Type: Spontaneous
  Country: US (occurrence: None)
  Receive Date: 20130305
  Receipt Date: 20130305
  Transmission Date: 20140127
  Serious: Yes (Life-Threatening, Other)
  Sender: FDA-Public Use
  Company Number: 163-21880-12070881

PATIENT
  Age: 64 Year
  Sex: Female
  Weight: 56.7 kg

DRUGS (6)
  1. REVLIMID [Suspect]
     Indication: PLASMA CELL MYELOMA
     Dosage: 25 MG, 21 IN 21 D, PO
     Route: 048
     Dates: start: 20120603
  2. CALTRATE WITH D (LEKOVIT CA) (UNKNOWN) [Concomitant]
  3. CENTRUM SILVER (CENTRUM SILVER) (UNKNOWN) [Concomitant]
  4. DEXAMETHASONE (DEXAMETHASONE) (UNKNOWN) [Concomitant]
  5. FISH OIL (FISH OIL) (UNKNOWN) [Concomitant]
  6. ZYRTEC (CETIRIZINE HYDROCHLORIDE) (UNKNOWN) [Concomitant]

REACTIONS (11)
  - Rash [None]
  - Eye swelling [None]
  - Ear swelling [None]
  - Nocturia [None]
  - Abdominal distension [None]
  - Somnolence [None]
  - Fatigue [None]
  - Abdominal discomfort [None]
  - Tremor [None]
  - Weight decreased [None]
  - Urinary tract infection [None]
